FAERS Safety Report 9262883 (Version 1)
Quarter: 2013Q2

REPORT INFORMATION
  Report Type: Spontaneous
  Country: BR (occurrence: BR)
  Receive Date: 20130430
  Receipt Date: 20130430
  Transmission Date: 20140414
  Serious: Yes (Other)
  Sender: FDA-Public Use
  Company Number: BR-PFIZER INC-2013130904

PATIENT
  Age: 84 Year
  Sex: Female
  Weight: 42 kg

DRUGS (2)
  1. LIPITOR [Suspect]
     Dosage: 20 MG (ONE TABLET), ONCE DAILY
     Dates: start: 2007
  2. FRONTAL [Concomitant]
     Dosage: 2 MG (ONE TABLET), ONCE DAILY
     Dates: start: 201209

REACTIONS (5)
  - Skin cancer [Not Recovered/Not Resolved]
  - Herpes ophthalmic [Unknown]
  - Hypoaesthesia [Not Recovered/Not Resolved]
  - Fall [Unknown]
  - Hernia [Unknown]
